FAERS Safety Report 4742137-3 (Version None)
Quarter: 2005Q3

REPORT INFORMATION
  Report Type: 
  Country: None (occurrence: None)
  Receive Date: 20050808
  Receipt Date: 20050722
  Transmission Date: 20060218
  Serious: Yes (Hospitalization, Other)
  Sender: FDA-Public Use
  Company Number: USA0507102314

PATIENT
  Age: 71 Year
  Sex: Female
  Weight: 52 kg

DRUGS (9)
  1. FORTEO [Suspect]
     Indication: OSTEOPOROSIS
     Dosage: 20 UG DAY
     Dates: start: 20041001, end: 20050301
  2. CITRACAL (CALCIUM CITRATE) [Concomitant]
  3. ENBREL [Concomitant]
  4. PREDNISONE [Concomitant]
  5. DIOVAN [Concomitant]
  6. MULTI-VITAMINS [Concomitant]
  7. DURAGESIC-100 [Concomitant]
  8. DEMEROL [Concomitant]
  9. VALIUM [Concomitant]

REACTIONS (7)
  - ASTHENIA [None]
  - DEHYDRATION [None]
  - DYSSTASIA [None]
  - HYPERCALCAEMIA [None]
  - PHARMACEUTICAL PRODUCT COMPLAINT [None]
  - RESPIRATORY TRACT INFECTION [None]
  - THINKING ABNORMAL [None]
